FAERS Safety Report 23852611 (Version 1)
Quarter: 2024Q2

REPORT INFORMATION
  Report Type: Report from Study
  Country: US (occurrence: US)
  Receive Date: 20240514
  Receipt Date: 20240514
  Transmission Date: 20240716
  Serious: Yes (Other)
  Sender: FDA-Public Use
  Company Number: US-ABBVIE-5755925

PATIENT
  Age: 68 Year
  Sex: Male

DRUGS (1)
  1. SKYRIZI [Suspect]
     Active Substance: RISANKIZUMAB-RZAA
     Indication: Product used for unknown indication
     Route: 058
     Dates: start: 202404

REACTIONS (5)
  - Skin cancer [Recovering/Resolving]
  - Pain in extremity [Recovering/Resolving]
  - Injury [Unknown]
  - Central cord syndrome [Unknown]
  - Fall [Unknown]

NARRATIVE: CASE EVENT DATE: 20240401
